FAERS Safety Report 23134134 (Version 1)
Quarter: 2023Q4

REPORT INFORMATION
  Report Type: Spontaneous
  Country: CN (occurrence: CN)
  Receive Date: 20231101
  Receipt Date: 20231101
  Transmission Date: 20240110
  Serious: Yes (Other)
  Sender: FDA-Public Use
  Company Number: CN-JNJFOC-20231074126

PATIENT
  Age: 1 Month
  Sex: Male
  Weight: 1.5 kg

DRUGS (2)
  1. CHILDRENS MOTRIN [Suspect]
     Active Substance: IBUPROFEN
     Indication: Patent ductus arteriosus repair
     Dosage: VIA NASOGASTRIC FEEDING ST
     Route: 065
     Dates: start: 20230929, end: 20230929
  2. CHILDRENS MOTRIN [Suspect]
     Active Substance: IBUPROFEN
     Dosage: VIA NASOGASTRIC FEEDING ST
     Route: 065
     Dates: start: 20230930, end: 20231001

REACTIONS (2)
  - Oliguria [Recovered/Resolved]
  - Off label use [Unknown]

NARRATIVE: CASE EVENT DATE: 20230929
